FAERS Safety Report 10552447 (Version 1)
Quarter: 2014Q4

REPORT INFORMATION
  Report Type: Spontaneous
  Country: US (occurrence: None)
  Receive Date: 20141023
  Receipt Date: 20141023
  Transmission Date: 20150529
  Serious: No
  Sender: FDA-Public Use
  Company Number: AP356-01172-SPO-US

PATIENT
  Age: 51 Year
  Sex: Female

DRUGS (2)
  1. PRAVASTATIN (PRAVASTATIN SODIUM) [Concomitant]
  2. BELVIQ [Suspect]
     Active Substance: LORCASERIN HYDROCHLORIDE
     Indication: WEIGHT DECREASED
     Route: 048
     Dates: start: 201407, end: 201407

REACTIONS (3)
  - Dizziness [None]
  - Headache [None]
  - Fatigue [None]

NARRATIVE: CASE EVENT DATE: 201407
